FAERS Safety Report 11442838 (Version 5)
Quarter: 2015Q4

REPORT INFORMATION
  Report Type: Report from Study
  Country: US (occurrence: None)
  Receive Date: 20150901
  Receipt Date: 20151014
  Transmission Date: 20160304
  Serious: Yes (Other)
  Sender: FDA-Public Use
  Company Number: ADR-2015-01471

PATIENT
  Age: 38 Year
  Sex: Male

DRUGS (2)
  1. COMPOUNDED BACLOFEN INTRATHECAL 600 MCG/ML [Suspect]
     Active Substance: BACLOFEN
     Indication: PAIN
     Dosage: 260.27 MCG/DAY
  2. DILAUDID [Suspect]
     Active Substance: HYDROMORPHONE HYDROCHLORIDE
     Indication: PAIN
     Dosage: 0.4338 MCG/DAY

REACTIONS (7)
  - Device occlusion [None]
  - Device kink [None]
  - Musculoskeletal stiffness [None]
  - Muscle spasms [None]
  - Device infusion issue [None]
  - Condition aggravated [None]
  - Adverse drug reaction [None]
